FAERS Safety Report 7479917-X (Version None)
Quarter: 2011Q2

REPORT INFORMATION
  Report Type: 
  Country: None (occurrence: None)
  Receive Date: 20110516
  Receipt Date: 20110505
  Transmission Date: 20111010
  Serious: Yes (Hospitalization, Other)
  Sender: FDA-Public Use
  Company Number: US-BIOGENIDEC-2011BI004497

PATIENT
  Age: 56 Year
  Sex: Female

DRUGS (6)
  1. TYSABRI [Suspect]
     Indication: MULTIPLE SCLEROSIS
     Route: 042
     Dates: start: 20100824
  2. BUTENAFINE [Concomitant]
     Indication: DRUG THERAPY
  3. METANX (L-METHYLFOLATE-B6-B12) [Concomitant]
     Indication: PRODUCT USED FOR UNKNOWN INDICATION
  4. CYMBALTA [Concomitant]
     Indication: PRODUCT USED FOR UNKNOWN INDICATION
     Route: 048
  5. BACLOFEN [Concomitant]
     Indication: PRODUCT USED FOR UNKNOWN INDICATION
     Route: 048
  6. VITAMIN B-12 [Concomitant]

REACTIONS (10)
  - LUNG NEOPLASM MALIGNANT [None]
  - OVERDOSE [None]
  - MUSCULOSKELETAL PAIN [None]
  - BONE PAIN [None]
  - PNEUMOTHORAX TRAUMATIC [None]
  - MUSCULAR WEAKNESS [None]
  - HIP FRACTURE [None]
  - CHRONIC OBSTRUCTIVE PULMONARY DISEASE [None]
  - FALL [None]
  - BACK PAIN [None]
